FAERS Safety Report 6447412-2 (Version None)
Quarter: 2009Q4

REPORT INFORMATION
  Report Type: 
  Country: None (occurrence: None)
  Receive Date: 20091119
  Receipt Date: 20081120
  Transmission Date: 20100525
  Serious: Yes (Hospitalization)
  Sender: FDA-Public Use
  Company Number: US-AMGEN-KDL317901

PATIENT
  Sex: Male
  Weight: 82.6 kg

DRUGS (6)
  1. ENBREL [Suspect]
     Indication: RHEUMATOID ARTHRITIS
     Route: 058
     Dates: start: 20080311
  2. PREDNISONE [Concomitant]
  3. NEXIUM [Concomitant]
  4. FOLIC ACID [Concomitant]
     Dates: start: 20080124
  5. IRON [Concomitant]
  6. METHOTREXATE [Concomitant]
     Dates: start: 20080124

REACTIONS (1)
  - HERPES ZOSTER [None]
